FAERS Safety Report 14441153 (Version 4)
Quarter: 2018Q2

REPORT INFORMATION
  Report Type: Report from Study
  Country: DE (occurrence: DE)
  Receive Date: 20180125
  Receipt Date: 20180419
  Transmission Date: 20180711
  Serious: Yes (Hospitalization)
  Sender: FDA-Public Use
  Company Number: PHHO2017DE010240

PATIENT
  Age: 69 Year
  Sex: Female
  Weight: 88.8 kg

DRUGS (36)
  1. DEKRISTOL [Concomitant]
     Active Substance: CHOLECALCIFEROL
     Indication: VITAMIN D DEFICIENCY
     Dosage: (20000 I.E. QW)
     Route: 048
     Dates: start: 20170509
  2. FUNGIZID [Concomitant]
     Dosage: 200 MG, BID (TABLET)
     Route: 067
     Dates: end: 20170720
  3. CARBOPLATIN. [Suspect]
     Active Substance: CARBOPLATIN
     Indication: BREAST CANCER
     Dosage: AUC 2, D1, D8 Q3W
     Route: 042
     Dates: start: 20170424, end: 20170718
  4. ALLOPURINOL. [Concomitant]
     Active Substance: ALLOPURINOL
     Indication: GOUT
     Dosage: 100 MG, QD
     Route: 048
     Dates: start: 2006
  5. NOVAMINSULFON [Concomitant]
     Active Substance: METAMIZOLE
     Indication: CHEMICAL CYSTITIS
     Dosage: (5X 30?)
     Route: 048
     Dates: start: 20170523, end: 20170607
  6. CLEXANE [Concomitant]
     Active Substance: ENOXAPARIN SODIUM
     Dosage: 0.4 ML, QD
     Route: 058
     Dates: start: 20170706, end: 20170714
  7. AMOCLAV [Concomitant]
     Active Substance: AMOXICILLIN\CLAVULANATE POTASSIUM
     Indication: BREAST INFLAMMATION
     Dosage: 1 DF, TID (825 + 125 MG)
     Route: 048
     Dates: start: 20170421, end: 20170430
  8. MCP [Concomitant]
     Active Substance: METOCLOPRAMIDE HYDROCHLORIDE
     Indication: PROPHYLAXIS OF NAUSEA AND VOMITING
     Dosage: 20 MG, QD
     Route: 042
     Dates: start: 20170704, end: 20170704
  9. GEMZAR [Suspect]
     Active Substance: GEMCITABINE HYDROCHLORIDE
     Indication: BREAST CANCER
     Dosage: 1000 MG/M2, D1, D8 Q3W
     Route: 042
     Dates: start: 20170424, end: 20170718
  10. IBUPROFEN. [Concomitant]
     Active Substance: IBUPROFEN
     Indication: FOOT FRACTURE
     Dosage: 800 MG, TID
     Route: 048
     Dates: start: 20170414, end: 20170421
  11. PARACETAMOL [Concomitant]
     Active Substance: ACETAMINOPHEN
     Indication: CHEMICAL CYSTITIS
     Dosage: 500 MG, PRN
     Route: 048
     Dates: start: 20170608
  12. TOREM [Concomitant]
     Active Substance: TORSEMIDE
     Indication: OEDEMA
     Dosage: 5 MG, QD
     Route: 048
     Dates: start: 20170705
  13. CLEXANE [Concomitant]
     Active Substance: ENOXAPARIN SODIUM
     Indication: THROMBOSIS PROPHYLAXIS
     Dosage: 0.4 ML, QD
     Route: 058
     Dates: start: 201703, end: 20170420
  14. MCP [Concomitant]
     Active Substance: METOCLOPRAMIDE HYDROCHLORIDE
     Indication: NAUSEA
     Dosage: 10 MG, PRN
     Route: 048
     Dates: start: 20170509
  15. ACICLOVIR [Concomitant]
     Active Substance: ACYCLOVIR
     Indication: GENITAL INFECTION
     Dosage: 200 MG (1-1-1-1-1)
     Route: 048
     Dates: start: 20170622, end: 20170626
  16. FUNGIZID [Concomitant]
     Dosage: 200 MG, BID (CREAM)
     Route: 061
     Dates: start: 20170622, end: 20170626
  17. ZINKPASTE [Concomitant]
     Indication: RASH
     Dosage: 1 ML, PRN
     Route: 061
     Dates: start: 20170706
  18. AMPHO MORONAL [Concomitant]
     Active Substance: AMPHOTERICIN B
     Indication: OESOPHAGITIS
     Dosage: 1 ML, (1-1-1-1)
     Route: 048
     Dates: start: 20170712
  19. SIMVASTATIN. [Concomitant]
     Active Substance: SIMVASTATIN
     Indication: HYPERCHOLESTEROLAEMIA
     Dosage: 20 MG, QD
     Route: 048
     Dates: start: 201610, end: 20170509
  20. DEXAMETHASONE. [Concomitant]
     Active Substance: DEXAMETHASONE
     Indication: CHEMOTHERAPY
     Dosage: 8 MG (/CYCLE Q3W)
     Route: 042
     Dates: start: 20170425, end: 20170614
  21. FUNGIZID [Concomitant]
     Indication: GENITAL INFECTION
     Dosage: 200 MG, BID (TABLET)
     Route: 067
     Dates: start: 20170622, end: 20170626
  22. OVESTIN [Concomitant]
     Active Substance: ESTRIOL
     Indication: GENITAL INFECTION
     Dosage: 0.5 MG, (3X WOCHE)
     Route: 067
     Dates: start: 20170627
  23. EMEND [Concomitant]
     Active Substance: APREPITANT
     Indication: PROPHYLAXIS OF NAUSEA AND VOMITING
     Dosage: 125 MG, QD
     Route: 048
     Dates: start: 20170704, end: 20170704
  24. EMEND [Concomitant]
     Active Substance: APREPITANT
     Dosage: 80 MG, QD
     Route: 048
     Dates: start: 20170705, end: 20170706
  25. ANASTRAZOL [Concomitant]
     Active Substance: ANASTROZOLE
     Indication: TARGETED CANCER THERAPY
     Dosage: 1 MG
     Route: 048
     Dates: start: 2011, end: 20170403
  26. METFORMIN [Concomitant]
     Active Substance: METFORMIN HYDROCHLORIDE
     Indication: TYPE 2 DIABETES MELLITUS
     Dosage: 500 MG, BID
     Route: 048
     Dates: start: 201604
  27. GRANISETRON [Concomitant]
     Active Substance: GRANISETRON
     Indication: CHEMOTHERAPY
     Dosage: 6 MG (/CYCLE Q3W)
     Route: 042
     Dates: start: 20170425
  28. STEROFUNDIN [Concomitant]
     Active Substance: CALCIUM CHLORIDE\MAGNESIUM CHLORIDE\POTASSIUM CHLORIDE\SODIUM ACETATE\SODIUM CHLORIDE
     Indication: ACUTE KIDNEY INJURY
     Dosage: 1000 ML, BID
     Route: 042
     Dates: start: 20170619, end: 20170623
  29. PANTOPRAZOLE SODIUM. [Concomitant]
     Active Substance: PANTOPRAZOLE SODIUM
     Indication: DYSPEPSIA
     Dosage: 40 MG, QD
     Route: 048
     Dates: start: 20170414
  30. SPASMEX [Concomitant]
     Indication: CHEMICAL CYSTITIS
     Dosage: 20 MG, PRN
     Route: 048
     Dates: start: 20170523, end: 20170607
  31. FUNGIZID [Concomitant]
     Dosage: 1 G, BID (CREAM)
     Route: 061
     Dates: end: 20170720
  32. STEROFUNDIN [Concomitant]
     Active Substance: CALCIUM CHLORIDE\MAGNESIUM CHLORIDE\POTASSIUM CHLORIDE\SODIUM ACETATE\SODIUM CHLORIDE
     Indication: VOMITING
     Dosage: 500 ML, QD
     Route: 042
     Dates: start: 20170709, end: 20170709
  33. MCS110 [Suspect]
     Active Substance: LACNOTUZUMAB
     Indication: BREAST CANCER
     Dosage: 10 MG/KG, Q3W
     Route: 042
     Dates: start: 20170424, end: 20170704
  34. LEGANTO [Concomitant]
     Active Substance: ROTIGOTINE
     Indication: RESTLESS LEGS SYNDROME
     Dosage: 1 MG, QD
     Route: 062
     Dates: start: 201604
  35. NOVAMINSULFON [Concomitant]
     Active Substance: METAMIZOLE
     Indication: PAIN IN EXTREMITY
     Dosage: 500 MG, (4X 20?)
     Route: 048
     Dates: start: 201702
  36. IBUPROFEN. [Concomitant]
     Active Substance: IBUPROFEN
     Dosage: 800 MG, PRN
     Route: 048
     Dates: start: 20170422

REACTIONS (3)
  - Erysipelas [Recovered/Resolved]
  - Genital infection [Recovered/Resolved]
  - Generalised oedema [Recovered/Resolved]

NARRATIVE: CASE EVENT DATE: 20170502
